FAERS Safety Report 6540203-3 (Version None)
Quarter: 2010Q1

REPORT INFORMATION
  Report Type: 
  Country: None (occurrence: None)
  Receive Date: 20100115
  Receipt Date: 20100110
  Transmission Date: 20100710
  Serious: Yes (Hospitalization)
  Sender: FDA-Public Use
  Company Number: GB-WATSON-2010-00177

PATIENT
  Age: 16 Month
  Sex: Female

DRUGS (2)
  1. LEVETIRACETAM [Suspect]
     Indication: CONVULSION
     Dosage: 60 MG/KG, DAILY
  2. CLOBAZAM [Suspect]
     Indication: CONVULSION
     Dosage: 400 UG/KG, DAILY

REACTIONS (2)
  - BLISTER [None]
  - COMA [None]
